FAERS Safety Report 24692751 (Version 1)
Quarter: 2024Q4

REPORT INFORMATION
  Report Type: Report from Study
  Country: ZA (occurrence: ZA)
  Receive Date: 20241203
  Receipt Date: 20241203
  Transmission Date: 20250114
  Serious: Yes (Hospitalization, Other)
  Sender: ALEXION PHARMACEUTICALS
  Company Number: ZA-AstraZeneca-CH-00759967A

PATIENT
  Age: 84 Year

DRUGS (20)
  1. DAPAGLIFLOZIN [Suspect]
     Active Substance: DAPAGLIFLOZIN
     Indication: Diabetes mellitus
     Dosage: 10 MILLIGRAM, UNK
  2. DAPAGLIFLOZIN [Suspect]
     Active Substance: DAPAGLIFLOZIN
     Dosage: 10 MILLIGRAM, UNK
  3. DAPAGLIFLOZIN [Suspect]
     Active Substance: DAPAGLIFLOZIN
     Dosage: 10 MILLIGRAM, UNK
  4. DAPAGLIFLOZIN [Suspect]
     Active Substance: DAPAGLIFLOZIN
     Dosage: 10 MILLIGRAM, UNK
  5. MEMANTINE UNICHEM [Concomitant]
     Indication: Dementia Alzheimer^s type
  6. MEMANTINE UNICHEM [Concomitant]
  7. PANTOPRAZOLE SODIUM [Concomitant]
     Active Substance: PANTOPRAZOLE SODIUM
     Indication: Ulcer
  8. PANTOPRAZOLE SODIUM [Concomitant]
     Active Substance: PANTOPRAZOLE SODIUM
  9. FLUTICASONE PROPIONATE [Concomitant]
     Active Substance: FLUTICASONE PROPIONATE
  10. FLUTICASONE PROPIONATE [Concomitant]
     Active Substance: FLUTICASONE PROPIONATE
  11. CARVEDILOL [Concomitant]
     Active Substance: CARVEDILOL
     Indication: Hypertension
  12. CARVEDILOL [Concomitant]
     Active Substance: CARVEDILOL
  13. EUTHYROX [Concomitant]
     Active Substance: LEVOTHYROXINE SODIUM
     Indication: Hypothyroidism
  14. EUTHYROX [Concomitant]
     Active Substance: LEVOTHYROXINE SODIUM
  15. EUTHYROX [Concomitant]
     Active Substance: LEVOTHYROXINE SODIUM
  16. EUTHYROX [Concomitant]
     Active Substance: LEVOTHYROXINE SODIUM
  17. Spiractin [Concomitant]
     Indication: Hypertension
  18. Spiractin [Concomitant]
  19. NIFEDIPINE [Concomitant]
     Active Substance: NIFEDIPINE
     Indication: Hypertension
  20. NIFEDIPINE [Concomitant]
     Active Substance: NIFEDIPINE

REACTIONS (1)
  - Cataract [Unknown]
